FAERS Safety Report 12600328 (Version 1)
Quarter: 2016Q3

REPORT INFORMATION
  Report Type: Spontaneous
  Country: DK (occurrence: DK)
  Receive Date: 20160727
  Receipt Date: 20160727
  Transmission Date: 20161109
  Serious: Yes (Death, Life-Threatening, Hospitalization)
  Sender: FDA-Public Use
  Company Number: PHHY2015DK078973

PATIENT
  Age: 64 Year
  Sex: Male

DRUGS (12)
  1. SANDIMMUN [Concomitant]
     Active Substance: CYCLOSPORINE
     Indication: PSORIATIC ARTHROPATHY
     Route: 065
     Dates: start: 20150521
  2. EUCREAS [Concomitant]
     Active Substance: METFORMIN HYDROCHLORIDE\VILDAGLIPTIN
     Indication: DIABETES MELLITUS
     Route: 065
  3. GABAPENTIN. [Concomitant]
     Active Substance: GABAPENTIN
     Indication: NEURALGIA
     Route: 065
  4. METHOTREXATE (METHOTREXATE SODIUM) [Suspect]
     Active Substance: METHOTREXATE SODIUM
     Indication: PSORIATIC ARTHROPATHY
     Dosage: 5 MG, QW
     Route: 048
     Dates: start: 20150521
  5. INSULIN [Concomitant]
     Active Substance: INSULIN NOS
     Indication: DIABETES MELLITUS
     Route: 065
  6. AMLODIPIN ACTAVIS//AMLODIPINE BESILATE [Concomitant]
     Indication: PRODUCT USED FOR UNKNOWN INDICATION
     Route: 065
  7. FOLININE [Concomitant]
     Indication: PRODUCT USED FOR UNKNOWN INDICATION
     Route: 065
     Dates: start: 20150521
  8. KININ [Concomitant]
     Active Substance: QUININE HYDROCHLORIDE
     Indication: RESTLESS LEGS SYNDROME
     Route: 065
  9. OMEPRAZOL//OMEPRAZOLE [Concomitant]
     Indication: PROPHYLAXIS AGAINST GASTROINTESTINAL ULCER
     Route: 065
  10. ZARATOR ^PARKE DAVIS^ [Concomitant]
     Indication: HYPERCHOLESTEROLAEMIA
     Route: 065
  11. HJERTEMAGNYL                       /00228701/ [Concomitant]
     Active Substance: ASPIRIN\MAGNESIUM OXIDE
     Indication: PROPHYLAXIS
     Route: 065
  12. ODRIK [Concomitant]
     Active Substance: TRANDOLAPRIL
     Indication: PRODUCT USED FOR UNKNOWN INDICATION
     Route: 065

REACTIONS (12)
  - Bone marrow failure [Fatal]
  - Malaise [Unknown]
  - Vomiting [Unknown]
  - Stomatitis [Unknown]
  - Thrombocytopenia [Unknown]
  - Oesophageal infection [Unknown]
  - Sepsis [Fatal]
  - Leukopenia [Unknown]
  - Multiple organ dysfunction syndrome [Fatal]
  - Blood creatinine increased [Unknown]
  - Acute kidney injury [Fatal]
  - Frequent bowel movements [Unknown]

NARRATIVE: CASE EVENT DATE: 201506
